FAERS Safety Report 7113823-5 (Version None)
Quarter: 2010Q4

REPORT INFORMATION
  Report Type: 
  Country: None (occurrence: None)
  Receive Date: 20101119
  Receipt Date: 20101110
  Transmission Date: 20110411
  Serious: Yes (Hospitalization)
  Sender: FDA-Public Use
  Company Number: GB-MERCK-1011USA01755

PATIENT
  Age: 48 Year
  Sex: Female

DRUGS (9)
  1. DECADRON [Suspect]
     Indication: MULTIPLE MYELOMA
     Route: 048
     Dates: start: 20100630, end: 20100921
  2. VELCADE [Suspect]
     Indication: MULTIPLE MYELOMA
     Route: 042
     Dates: start: 20100630, end: 20100921
  3. ACYCLOVIR [Concomitant]
     Route: 065
  4. ALLOPURINOL [Concomitant]
     Route: 065
  5. DOCUSATE SODIUM [Concomitant]
     Route: 065
  6. ENTECAVIR [Concomitant]
     Route: 065
  7. LANSOPRAZOLE [Concomitant]
     Route: 065
  8. MORPHINE SULFATE [Concomitant]
     Route: 065
  9. SENNA [Concomitant]
     Route: 065

REACTIONS (3)
  - CONSTIPATION [None]
  - NEUTROPENIC SEPSIS [None]
  - PYREXIA [None]
